FAERS Safety Report 6839485-X (Version None)
Quarter: 2010Q3

REPORT INFORMATION
  Report Type: 
  Country: None (occurrence: None)
  Receive Date: 20100714
  Receipt Date: 20090817
  Transmission Date: 20110219
  Serious: No
  Sender: FDA-Public Use
  Company Number: A0802523A

PATIENT
  Age: 9 Year
  Sex: Female

DRUGS (2)
  1. FLOVENT [Suspect]
     Indication: ASTHMA
     Dosage: 2PUFF TWICE PER DAY
     Route: 048
     Dates: start: 20060101
  2. PREVACID [Concomitant]

REACTIONS (2)
  - DENTAL CARIES [None]
  - ENDODONTIC PROCEDURE [None]
